FAERS Safety Report 23976037 (Version 1)
Quarter: 2024Q2

REPORT INFORMATION
  Report Type: Spontaneous
  Country: FR (occurrence: FR)
  Receive Date: 20240614
  Receipt Date: 20240614
  Transmission Date: 20240716
  Serious: Yes (Life-Threatening)
  Sender: FDA-Public Use
  Company Number: None

PATIENT
  Age: 7 Year
  Sex: Male
  Weight: 17 kg

DRUGS (6)
  1. METHOTREXATE [Suspect]
     Active Substance: METHOTREXATE
     Indication: Burkitt^s lymphoma
     Dosage: 16 MILLIGRAM/SQ. METER, TOTAL
     Route: 042
     Dates: start: 20240204, end: 20240224
  2. METHOTREXATE [Suspect]
     Active Substance: METHOTREXATE
     Dosage: 30 MILLIGRAM, TOTAL
     Route: 037
     Dates: start: 20240415, end: 20240415
  3. RITUXIMAB [Suspect]
     Active Substance: RITUXIMAB
     Indication: Burkitt^s lymphoma
     Dosage: UNK
     Route: 042
     Dates: start: 20240128, end: 20240407
  4. CYTARABINE [Suspect]
     Active Substance: CYTARABINE
     Indication: Burkitt^s lymphoma
     Dosage: 84 MILLIGRAM, TOTAL
     Route: 037
     Dates: start: 20240314, end: 20240419
  5. ETOPOSIDE [Concomitant]
     Active Substance: ETOPOSIDE
     Dosage: UNK
     Route: 065
  6. CYTARABINE [Concomitant]
     Active Substance: CYTARABINE
     Indication: Burkitt^s lymphoma
     Dosage: 12710 MILLIGRAM, TOTAL
     Route: 042
     Dates: start: 20240314, end: 20240419

REACTIONS (2)
  - Toxic leukoencephalopathy [Recovering/Resolving]
  - Central nervous system enteroviral infection [Recovering/Resolving]

NARRATIVE: CASE EVENT DATE: 20240503
